FAERS Safety Report 4367095-5 (Version None)
Quarter: 2004Q2

REPORT INFORMATION
  Report Type: 
  Country: None (occurrence: None)
  Receive Date: 20040528
  Receipt Date: 20040517
  Transmission Date: 20050107
  Serious: Yes (Other)
  Sender: FDA-Public Use
  Company Number: LB-MERCK-0405USA01185

PATIENT
  Age: 41 Year
  Sex: Female

DRUGS (4)
  1. PARACETAMOL TABLETS BP [Concomitant]
     Route: 065
  2. VIOXX [Suspect]
     Indication: BACK PAIN
     Route: 048
     Dates: start: 20030311
  3. VIOXX [Suspect]
     Indication: ARTHRALGIA
     Route: 048
     Dates: start: 20030311
  4. VITAMIN B (UNSPECIFIED) [Concomitant]
     Route: 065

REACTIONS (1)
  - PRURITUS [None]
